FAERS Safety Report 13459476 (Version 1)
Quarter: 2017Q2

REPORT INFORMATION
  Report Type: Not Available
  Country: US (occurrence: US)
  Receive Date: 20170419
  Receipt Date: 20170419
  Transmission Date: 20170830
  Serious: No
  Sender: FDA-Public Use
  Company Number: US-PARAGONBIOTECK-2017-US-002325

PATIENT
  Sex: 0

DRUGS (1)
  1. PHENYLEPHRINE HYDROCHLORIDE OPHTHALMIC [Suspect]
     Active Substance: PHENYLEPHRINE HYDROCHLORIDE
     Dosage: 1 DROP APPLIED TO EACH EYE

REACTIONS (2)
  - Mydriasis [Unknown]
  - Drug effect prolonged [Unknown]
